FAERS Safety Report 8054038-6 (Version None)
Quarter: 2011Q4

REPORT INFORMATION
  Report Type: 
  Country: None (occurrence: None)
  Receive Date: 20111213
  Receipt Date: 20110819
  Transmission Date: 20120403
  Serious: No
  Sender: FDA-Public Use
  Company Number: 2011SP039478

PATIENT
  Age: 63 Year
  Sex: Female

DRUGS (4)
  1. PROZAC [Concomitant]
  2. KLONOPIN [Concomitant]
  3. SAPHRIS [Suspect]
     Indication: BIPOLAR DISORDER
     Dosage: 10 MG;BID 10 MG;HS
     Dates: start: 20110501
  4. SYNTHROID [Concomitant]

REACTIONS (2)
  - INAPPROPRIATE SCHEDULE OF DRUG ADMINISTRATION [None]
  - SOMNOLENCE [None]
